FAERS Safety Report 18387458 (Version 1)
Quarter: 2020Q4

REPORT INFORMATION
  Report Type: Spontaneous
  Country: GB (occurrence: GB)
  Receive Date: 20201015
  Receipt Date: 20201015
  Transmission Date: 20210114
  Serious: Yes (Other)
  Sender: FDA-Public Use
  Company Number: GB-GLAXOSMITHKLINE-GB2020203573

PATIENT
  Age: 75 Year
  Sex: Male
  Weight: 77.56 kg

DRUGS (2)
  1. FLIXONASE [Suspect]
     Active Substance: FLUTICASONE PROPIONATE
     Indication: SINONASAL OBSTRUCTION
     Dosage: UNK
     Route: 055
     Dates: start: 20200911, end: 20200912
  2. LOSARTAN POTASSIUM. [Concomitant]
     Active Substance: LOSARTAN POTASSIUM
     Indication: PRODUCT USED FOR UNKNOWN INDICATION
     Dosage: UNK
     Route: 065

REACTIONS (4)
  - Abdominal discomfort [Recovered/Resolved]
  - Head discomfort [Recovered/Resolved]
  - Diarrhoea [Recovered/Resolved]
  - Regurgitation [Recovered/Resolved]

NARRATIVE: CASE EVENT DATE: 20200912
